FAERS Safety Report 4659614-6 (Version None)
Quarter: 2005Q2

REPORT INFORMATION
  Report Type: 
  Country: None (occurrence: None)
  Receive Date: 20050510
  Receipt Date: 20050427
  Transmission Date: 20051028
  Serious: Yes (Other)
  Sender: FDA-Public Use
  Company Number: 2005066295

PATIENT
  Age: 65 Year
  Sex: Male

DRUGS (3)
  1. SULPERAZON (SULBACTAM, CEFOPERAZONE) [Suspect]
     Indication: LOWER RESPIRATORY TRACT INFECTION
     Dosage: 3 GRAM (1.5 GRAM, 2 IN 1 D), INTRAVENOUS
     Route: 042
     Dates: start: 20050414, end: 20050414
  2. ACETYLCYSTEINE [Concomitant]
  3. OMEPRAZOLE [Concomitant]

REACTIONS (1)
  - RENAL FAILURE ACUTE [None]
